FAERS Safety Report 23600972 (Version 1)
Quarter: 2024Q1

REPORT INFORMATION
  Report Type: Report from Study
  Country: US (occurrence: US)
  Receive Date: 20240306
  Receipt Date: 20240306
  Transmission Date: 20240410
  Serious: Yes (Death)
  Sender: FDA-Public Use
  Company Number: US-OTSUKA-2024_005871

PATIENT
  Age: 81 Year
  Sex: Male
  Weight: 90.72 kg

DRUGS (1)
  1. CEDAZURIDINE\DECITABINE [Suspect]
     Active Substance: CEDAZURIDINE\DECITABINE
     Indication: Illness
     Dosage: 1 DF (35 MG DECITABINE AND 100 MG CEDAZURIDINE) DAILY ON DAYS 1 THROUGH 5 OF EVERY 28 DAY CYCLE
     Route: 048

REACTIONS (1)
  - Death [Fatal]

NARRATIVE: CASE EVENT DATE: 20240222
